FAERS Safety Report 20625482 (Version 1)
Quarter: 2022Q1

REPORT INFORMATION
  Report Type: Spontaneous
  Country: ES (occurrence: ES)
  Receive Date: 20220323
  Receipt Date: 20220323
  Transmission Date: 20220424
  Serious: Yes (Other)
  Sender: FDA-Public Use
  Company Number: ES-SUN PHARMACEUTICAL INDUSTRIES LTD-2022R1-330129

PATIENT
  Age: 24 Month
  Sex: Male
  Weight: 15 kg

DRUGS (2)
  1. TIZANIDINE [Suspect]
     Active Substance: TIZANIDINE
     Indication: Quadriplegia
     Dosage: 0.15 MILLIGRAM/KILOGRAM, DAILY
     Route: 065
  2. TIZANIDINE [Suspect]
     Active Substance: TIZANIDINE
     Dosage: 1.6 MILLIGRAM/KILOGRAM, DAILY
     Route: 065

REACTIONS (3)
  - Overdose [Unknown]
  - Multiple organ dysfunction syndrome [Recovering/Resolving]
  - Dehydration [Recovering/Resolving]
